FAERS Safety Report 9116841 (Version 1)
Quarter: 2013Q1

REPORT INFORMATION
  Report Type: Spontaneous
  Country: US (occurrence: US)
  Receive Date: 20130225
  Receipt Date: 20130225
  Transmission Date: 20140127
  Serious: Yes (Other)
  Sender: FDA-Public Use
  Company Number: US-RB-050228-13

PATIENT
  Sex: Female

DRUGS (3)
  1. MUCINEX DM [Suspect]
     Indication: COUGH
     Dosage: 1 TABLET
     Route: 048
     Dates: start: 20130121
  2. MUCINEX DM [Suspect]
     Indication: RESPIRATORY TRACT CONGESTION
     Dosage: 1 TABLET
     Route: 048
     Dates: start: 20130121
  3. MUCINEX DM [Suspect]

REACTIONS (4)
  - Neurological symptom [Unknown]
  - Syncope [Unknown]
  - Respiratory arrest [Unknown]
  - Pulse absent [Unknown]
